FAERS Safety Report 6315669-4 (Version None)
Quarter: 2009Q3

REPORT INFORMATION
  Report Type: 
  Country: None (occurrence: None)
  Receive Date: 20090818
  Receipt Date: 20090803
  Transmission Date: 20100115
  Serious: Yes (Hospitalization)
  Sender: FDA-Public Use
  Company Number: 2008AL011326

PATIENT
  Age: 72 Year
  Sex: Female

DRUGS (29)
  1. DIGOXIN [Suspect]
     Indication: CARDIAC OPERATION
     Dosage: 0.25MG, DAILY, PO
     Route: 048
  2. AMLODIPINE [Concomitant]
  3. ZOCOR [Concomitant]
  4. CYMBALTA [Concomitant]
  5. METANX [Concomitant]
  6. CELEBREX [Concomitant]
  7. FERROUS SULFATE TAB [Concomitant]
  8. CYANOCOBALAMIN [Concomitant]
  9. DETROL [Concomitant]
  10. MEGACE [Concomitant]
  11. COLACE [Concomitant]
  12. ARICEPT [Concomitant]
  13. ASPIRIN [Concomitant]
  14. RANITIDINE [Concomitant]
  15. TRIAMTERENE [Concomitant]
  16. PLAVIX [Concomitant]
  17. ZETIA [Concomitant]
  18. PROCTOSOL [Concomitant]
  19. TRICOR [Concomitant]
  20. PROPOXYPHENE HCL CAP [Concomitant]
  21. ZYMAR [Concomitant]
  22. CLOPIDOGREL [Concomitant]
  23. LORAZEPAM [Concomitant]
  24. ZYRTEC [Concomitant]
  25. PREDNISOLONE [Concomitant]
  26. MEGESTROL ACETATE [Concomitant]
  27. MULTI-VITAMIN [Concomitant]
  28. LORTAB [Concomitant]
  29. JEVITY [Concomitant]

REACTIONS (39)
  - ABDOMINAL PAIN [None]
  - ANAEMIA [None]
  - ANGINA UNSTABLE [None]
  - ANHEDONIA [None]
  - ANXIETY [None]
  - APPETITE DISORDER [None]
  - BLOOD CALCIUM DECREASED [None]
  - BLOOD GLUCOSE INCREASED [None]
  - CATHETER SITE INFECTION [None]
  - CONFUSIONAL STATE [None]
  - CORONARY ARTERY BYPASS [None]
  - DEMENTIA [None]
  - DIZZINESS [None]
  - ECONOMIC PROBLEM [None]
  - FAILURE TO THRIVE [None]
  - FATIGUE [None]
  - HIATUS HERNIA [None]
  - HYPOKALAEMIA [None]
  - HYPOMAGNESAEMIA [None]
  - HYPOPHOSPHATAEMIA [None]
  - LEUKOCYTOSIS [None]
  - LOSS OF CONSCIOUSNESS [None]
  - MEMORY IMPAIRMENT [None]
  - MULTIPLE INJURIES [None]
  - NAUSEA [None]
  - NORMAL PRESSURE HYDROCEPHALUS [None]
  - OESOPHAGITIS [None]
  - PAIN [None]
  - POSTOPERATIVE ILEUS [None]
  - SICK SINUS SYNDROME [None]
  - SINUS BRADYCARDIA [None]
  - SYNCOPE [None]
  - THERAPEUTIC AGENT TOXICITY [None]
  - URINARY TRACT INFECTION [None]
  - UTERINE HAEMORRHAGE [None]
  - UTERINE LEIOMYOMA [None]
  - UTERINE STENOSIS [None]
  - VAGINAL HAEMORRHAGE [None]
  - VOMITING [None]
